FAERS Safety Report 8142202-7 (Version None)
Quarter: 2012Q1

REPORT INFORMATION
  Report Type: 
  Country: None (occurrence: None)
  Receive Date: 20120216
  Receipt Date: 20101127
  Transmission Date: 20120608
  Serious: Yes (Other)
  Sender: FDA-Public Use
  Company Number: US-ROCHE-1033191

PATIENT

DRUGS (2)
  1. MABTHERA [Suspect]
     Indication: CHRONIC LYMPHOCYTIC LEUKAEMIA
  2. ALEMTUZUMAB [Suspect]
     Indication: CHRONIC LYMPHOCYTIC LEUKAEMIA
     Route: 058

REACTIONS (11)
  - ABSCESS [None]
  - POST TRANSPLANT LYMPHOPROLIFERATIVE DISORDER [None]
  - TOXICITY TO VARIOUS AGENTS [None]
  - ANAEMIA HAEMOLYTIC AUTOIMMUNE [None]
  - PNEUMONIA CRYPTOCOCCAL [None]
  - THROMBOCYTOPENIA [None]
  - COLON CANCER METASTATIC [None]
  - NEUTROPENIA [None]
  - RASH [None]
  - PULMONARY EMBOLISM [None]
  - STAPHYLOCOCCAL BACTERAEMIA [None]
